FAERS Safety Report 8393036-X (Version None)
Quarter: 2012Q2

REPORT INFORMATION
  Report Type: 
  Country: None (occurrence: None)
  Receive Date: 20120529
  Receipt Date: 20120321
  Transmission Date: 20120825
  Serious: No
  Sender: FDA-Public Use
  Company Number: US-ABBOTT-12P-163-0918234-00

PATIENT
  Sex: Male
  Weight: 77.18 kg

DRUGS (5)
  1. ANDROGEL [Suspect]
     Indication: BLOOD TESTOSTERONE DECREASED
     Dosage: 2 PUMPS
     Dates: start: 20111018, end: 20120309
  2. COUMADIN [Suspect]
     Dosage: 4MG AND 3MG ALTERNATING EVERY OTHER DAY
     Dates: start: 20000101, end: 20120229
  3. COUMADIN [Suspect]
     Indication: HEART RATE IRREGULAR
     Dosage: 4 MG AND 3 MG ALTERNATING EVERY OTHER DAY   4MG AND 3MG ALTERNATING EVERY OTHER DAY
     Dates: start: 20000101, end: 20120229
  4. RESTASIS [Concomitant]
     Indication: PRODUCT USED FOR UNKNOWN INDICATION
     Route: 047
  5. COUMADIN [Suspect]
     Dates: start: 20120229

REACTIONS (2)
  - COAGULOPATHY [None]
  - HAEMATOCHEZIA [None]
